FAERS Safety Report 8363143-6 (Version None)
Quarter: 2012Q2

REPORT INFORMATION
  Report Type: 
  Country: None (occurrence: None)
  Receive Date: 20120516
  Receipt Date: 20111028
  Transmission Date: 20120825
  Serious: Yes (Hospitalization)
  Sender: FDA-Public Use
  Company Number: US-ALEXION-A201101514

PATIENT
  Sex: Female
  Weight: 80.952 kg

DRUGS (2)
  1. SOLIRIS [Suspect]
     Indication: APLASTIC ANAEMIA
  2. SOLIRIS [Suspect]
     Indication: PAROXYSMAL NOCTURNAL HAEMOGLOBINURIA
     Dosage: 900 MG, Q2W
     Route: 042
     Dates: start: 20110128, end: 20110923

REACTIONS (2)
  - IMMUNOGLOBULIN THERAPY [None]
  - NO THERAPEUTIC RESPONSE [None]
